FAERS Safety Report 9314384 (Version 2)
Quarter: 2013Q4

REPORT INFORMATION
  Report Type: Report from Study
  Country: TR (occurrence: TR)
  Receive Date: 20130529
  Receipt Date: 20131211
  Transmission Date: 20140711
  Serious: Yes (Other)
  Sender: FDA-Public Use
  Company Number: TR-BAYER-2013-063903

PATIENT
  Age: 22 Year
  Sex: Female

DRUGS (1)
  1. BETAFERON [Suspect]
     Dosage: UNK
     Route: 058
     Dates: start: 20050701

REACTIONS (3)
  - Loss of consciousness [Recovered/Resolved]
  - Multiple sclerosis [None]
  - Chills [Recovered/Resolved]
